FAERS Safety Report 16035749 (Version 1)
Quarter: 2019Q1

REPORT INFORMATION
  Report Type: Spontaneous
  Country: US (occurrence: US)
  Receive Date: 20190206
  Receipt Date: 20190206
  Transmission Date: 20190418
  Serious: Yes (Other)
  Sender: FDA-Public Use
  Company Number: None

PATIENT
  Age: 11 Year
  Sex: Female

DRUGS (2)
  1. IBRANCE [Suspect]
     Active Substance: PALBOCICLIB
     Indication: BRAIN NEOPLASM MALIGNANT
  2. IBRANCE [Suspect]
     Active Substance: PALBOCICLIB
     Indication: BRAIN NEOPLASM MALIGNANT
     Dates: start: 20190204

REACTIONS (1)
  - Off label use [None]

NARRATIVE: CASE EVENT DATE: 20190204
